FAERS Safety Report 7437346-9 (Version None)
Quarter: 2011Q2

REPORT INFORMATION
  Report Type: 
  Country: None (occurrence: None)
  Receive Date: 20110426
  Receipt Date: 20110413
  Transmission Date: 20111010
  Serious: Yes (Other)
  Sender: FDA-Public Use
  Company Number: PHHY2011SG31241

PATIENT
  Sex: Female

DRUGS (5)
  1. RASILEZ [Suspect]
     Dosage: 300 MG, UNK
     Route: 065
     Dates: start: 20101201
  2. DIOVAN [Concomitant]
     Dosage: 160 MG, QD
     Route: 065
  3. RASILEZ [Suspect]
     Dosage: 300 MG, UNK
     Route: 065
     Dates: start: 20100101, end: 20100901
  4. RASILEZ [Suspect]
     Dosage: 150 MG, UNK
     Route: 065
     Dates: start: 20090401, end: 20091201
  5. RASILEZ [Suspect]
     Dosage: 150 MG, UNK
     Route: 065
     Dates: start: 20101001, end: 20101101

REACTIONS (1)
  - URINE ALBUMIN/CREATININE RATIO INCREASED [None]
